FAERS Safety Report 9947968 (Version 1)
Quarter: 2014Q1

REPORT INFORMATION
  Report Type: Spontaneous
  Country: PR (occurrence: PR)
  Receive Date: 20140303
  Receipt Date: 20140303
  Transmission Date: 20141002
  Serious: No
  Sender: FDA-Public Use
  Company Number: PR-ABBVIE-13P-131-1058860-00

PATIENT
  Age: 18 Year
  Sex: Male

DRUGS (3)
  1. HUMIRA [Suspect]
     Indication: PRODUCT USED FOR UNKNOWN INDICATION
     Route: 058
     Dates: start: 2012, end: 201208
  2. HUMIRA [Suspect]
     Route: 058
     Dates: start: 201209, end: 20130218
  3. VIT B12 [Concomitant]
     Indication: VITILIGO

REACTIONS (5)
  - Malaise [Unknown]
  - Nasopharyngitis [Recovered/Resolved]
  - Haemorrhoids [Not Recovered/Not Resolved]
  - Benign neoplasm [Recovered/Resolved]
  - Abdominal pain [Recovered/Resolved]
